FAERS Safety Report 7261258-7 (Version None)
Quarter: 2011Q1

REPORT INFORMATION
  Report Type: 
  Country: None (occurrence: None)
  Receive Date: 20110130
  Receipt Date: 20100920
  Transmission Date: 20110831
  Serious: No
  Sender: FDA-Public Use
  Company Number: US-ABBOTT-10P-163-0672191-00

PATIENT
  Sex: Female
  Weight: 66.738 kg

DRUGS (10)
  1. PREDNISONE [Concomitant]
     Indication: RHEUMATOID ARTHRITIS
  2. HUMIRA [Suspect]
     Indication: RHEUMATOID ARTHRITIS
     Dates: start: 20080101, end: 20090101
  3. ACTONEL [Concomitant]
     Indication: OSTEOPOROSIS
  4. FISH OIL [Concomitant]
     Indication: PRODUCT USED FOR UNKNOWN INDICATION
  5. HUMIRA [Suspect]
     Dates: start: 20090101
  6. IBUPROFEN [Concomitant]
     Indication: PAIN
     Dates: start: 20100101
  7. MAGNESIUM SUPPLIMENT [Concomitant]
     Indication: PRODUCT USED FOR UNKNOWN INDICATION
  8. CALCUIM WITH VITAMIN D [Concomitant]
     Indication: PRODUCT USED FOR UNKNOWN INDICATION
  9. VITAMIN B-12 [Concomitant]
     Indication: PRODUCT USED FOR UNKNOWN INDICATION
  10. IBUPROFEN [Concomitant]
     Dates: end: 20100101

REACTIONS (3)
  - RASH PRURITIC [None]
  - RASH MACULAR [None]
  - DRUG INEFFECTIVE [None]
